FAERS Safety Report 7741089-1 (Version None)
Quarter: 2011Q3

REPORT INFORMATION
  Report Type: 
  Country: None (occurrence: None)
  Receive Date: 20110909
  Receipt Date: 20110831
  Transmission Date: 20111222
  Serious: Yes (Other)
  Sender: FDA-Public Use
  Company Number: GR-BRISTOL-MYERS SQUIBB COMPANY-16038408

PATIENT
  Age: 52 Year
  Sex: Male

DRUGS (1)
  1. MITOMYCIN [Suspect]
     Indication: GLAUCOMA
     Dosage: FORMU: INJECTION

REACTIONS (1)
  - RETINOPATHY [None]
